FAERS Safety Report 4764062-4 (Version None)
Quarter: 2005Q3

REPORT INFORMATION
  Report Type: 
  Country: None (occurrence: None)
  Receive Date: 20050906
  Receipt Date: 20050614
  Transmission Date: 20060218
  Serious: No
  Sender: FDA-Public Use
  Company Number: 2005-BP-10028BP

PATIENT
  Age: 67 Year
  Sex: Female

DRUGS (11)
  1. SPIRIVA [Suspect]
     Indication: CHRONIC OBSTRUCTIVE PULMONARY DISEASE
     Dosage: 18 MCG (18 MCG, QD), IH
     Route: 055
     Dates: start: 20050502
  2. ADVAIR DISKUS 100/50 [Suspect]
     Indication: CHRONIC OBSTRUCTIVE PULMONARY DISEASE
  3. NEURONTIN [Concomitant]
  4. FLEXERIL [Concomitant]
  5. TYLENOL [Concomitant]
  6. LIPITOR [Concomitant]
  7. ACCURETIC [Concomitant]
  8. DETROL LA [Concomitant]
  9. CLARITIN [Concomitant]
  10. DARVOCET [Concomitant]
  11. COMBIVENT (COMBIVENT  /GFR/) [Concomitant]

REACTIONS (1)
  - INSOMNIA [None]
